FAERS Safety Report 18840939 (Version 1)
Quarter: 2021Q1

REPORT INFORMATION
  Report Type: Spontaneous
  Country: PT (occurrence: PT)
  Receive Date: 20210204
  Receipt Date: 20210204
  Transmission Date: 20210419
  Serious: Yes (Hospitalization, Other)
  Sender: FDA-Public Use
  Company Number: PT-ROCHE-2757997

PATIENT
  Age: 91 Year

DRUGS (2)
  1. ERTAPENEM. [Concomitant]
     Active Substance: ERTAPENEM SODIUM
  2. TECENTRIQ [Suspect]
     Active Substance: ATEZOLIZUMAB
     Indication: TRANSITIONAL CELL CARCINOMA
     Route: 041
     Dates: start: 20200212

REACTIONS (10)
  - Hypotension [Unknown]
  - Pruritus [Unknown]
  - Haematuria [Unknown]
  - Purpura [Unknown]
  - Pneumonia [Unknown]
  - Fatigue [Unknown]
  - Anaemia [Unknown]
  - Somnolence [Unknown]
  - Thrombocytopenia [Unknown]
  - Urosepsis [Unknown]
